FAERS Safety Report 8297890-1 (Version None)
Quarter: 2012Q2

REPORT INFORMATION
  Report Type: 
  Country: None (occurrence: None)
  Receive Date: 20120419
  Receipt Date: 20120417
  Transmission Date: 20120825
  Serious: Yes (Death, Hospitalization)
  Sender: FDA-Public Use
  Company Number: PHEH2012US007488

PATIENT
  Sex: Male
  Weight: 53.061 kg

DRUGS (1)
  1. TOBI [Suspect]
     Dosage: 300 MG, BID

REACTIONS (4)
  - CYSTIC FIBROSIS [None]
  - LUNG DISORDER [None]
  - RESPIRATORY FAILURE [None]
  - DISEASE PROGRESSION [None]
